FAERS Safety Report 9730906 (Version 2)
Quarter: 2013Q4

REPORT INFORMATION
  Report Type: Spontaneous
  Country: ES (occurrence: ES)
  Receive Date: 20131205
  Receipt Date: 20131218
  Transmission Date: 20140711
  Serious: Yes (Other)
  Sender: FDA-Public Use
  Company Number: ES-B.I. PHARMACEUTICALS,INC./RIDGEFIELD-2013-BI-39708GD

PATIENT
  Age: 79 Year
  Sex: Female

DRUGS (8)
  1. LINAGLIPTIN [Suspect]
     Indication: TYPE 2 DIABETES MELLITUS
     Dosage: 5 MG
  2. VENLAFAXINE [Suspect]
     Dosage: 75 MG
  3. ATORVASTATIN [Suspect]
     Dosage: 40 MG
  4. ACETYLSALICYLIC ACID [Concomitant]
     Dosage: 100 MG
  5. OMEPRAZOLE [Concomitant]
     Dosage: 20 MG
  6. LEVOTHYROXIN [Concomitant]
     Dosage: 75 MCG
  7. ALENDRONIC ACID [Concomitant]
     Dosage: 5 MG
  8. METFORMIN [Concomitant]
     Indication: TYPE 2 DIABETES MELLITUS
     Dosage: 1700 MG

REACTIONS (3)
  - Liver injury [Recovered/Resolved]
  - Hepatotoxicity [Recovered/Resolved]
  - Drug interaction [Unknown]
